FAERS Safety Report 6648650-6 (Version None)
Quarter: 2010Q1

REPORT INFORMATION
  Report Type: 
  Country: None (occurrence: None)
  Receive Date: 20100319
  Receipt Date: 20100304
  Transmission Date: 20100710
  Serious: Yes (Hospitalization, Disabling)
  Sender: FDA-Public Use
  Company Number: 2010-028

PATIENT
  Age: 61 Year
  Sex: Male

DRUGS (18)
  1. FAZACLO ODT [Suspect]
     Indication: SCHIZOPHRENIA
     Dosage: 300MG-600MG DAILY PO
     Route: 048
     Dates: start: 20080925
  2. ACTOS [Concomitant]
  3. ASPIRIN [Concomitant]
  4. BUPROPION HCL [Concomitant]
  5. CITALOPRAM [Concomitant]
  6. DAILY VITE [Concomitant]
  7. FLOMAX [Concomitant]
  8. ISOSORBIDE DINITRATE [Concomitant]
  9. LISINOPRIL [Concomitant]
  10. NIASPAN [Concomitant]
  11. ZETIA [Concomitant]
  12. FERROUS SULFATE TAB [Concomitant]
  13. GABAPENTIN [Concomitant]
  14. IBUPROFEN [Concomitant]
  15. METOPROLOL TARTRATE [Concomitant]
  16. RANITIDINE HCL [Concomitant]
  17. ANTIVERT [Concomitant]
  18. . [Concomitant]

REACTIONS (4)
  - GAIT DISTURBANCE [None]
  - MENTAL STATUS CHANGES [None]
  - MOBILITY DECREASED [None]
  - WHEELCHAIR USER [None]
